FAERS Safety Report 7402711-2 (Version None)
Quarter: 2011Q1

REPORT INFORMATION
  Report Type: 
  Country: None (occurrence: None)
  Receive Date: 20110329
  Receipt Date: 20110314
  Transmission Date: 20110831
  Serious: Yes (Other)
  Sender: FDA-Public Use
  Company Number: IPC201103-000272

PATIENT
  Sex: Male

DRUGS (2)
  1. METOCLOPRAMIDE HYDROCHLORIDE [Suspect]
     Dates: start: 20070401, end: 20091001
  2. REGLAN [Suspect]
     Dates: start: 20070401, end: 20091001

REACTIONS (3)
  - CONDITION AGGRAVATED [None]
  - TEMPOROMANDIBULAR JOINT SYNDROME [None]
  - TARDIVE DYSKINESIA [None]
